FAERS Safety Report 19614050 (Version 2)
Quarter: 2021Q3

REPORT INFORMATION
  Report Type: Other
  Country: CA (occurrence: CA)
  Receive Date: 20210727
  Receipt Date: 20210929
  Transmission Date: 20211014
  Serious: Yes (Hospitalization)
  Sender: FDA-Public Use
  Company Number: CA-INTERCEPT-PM2021002279

PATIENT
  Age: 71 Year
  Sex: Female

DRUGS (2)
  1. OCALIVA [Suspect]
     Active Substance: OBETICHOLIC ACID
     Indication: PRIMARY BILIARY CHOLANGITIS
     Dosage: 5 MILLIGRAM, QD
     Route: 048
     Dates: start: 20191107
  2. URSO [Concomitant]
     Active Substance: URSODIOL
     Dosage: 1000 MILLIGRAM, QD

REACTIONS (6)
  - Pneumonia [Unknown]
  - Mediastinal mass [Unknown]
  - Dysstasia [Unknown]
  - Product dose omission issue [Recovered/Resolved]
  - Cytopenia [Unknown]
  - Fall [Recovered/Resolved]

NARRATIVE: CASE EVENT DATE: 2021
